FAERS Safety Report 8343028-1 (Version None)
Quarter: 2012Q1

REPORT INFORMATION
  Report Type: 
  Country: None (occurrence: None)
  Receive Date: 20120330
  Receipt Date: 20010302
  Transmission Date: 20120608
  Serious: Yes (Hospitalization)
  Sender: FDA-Public Use
  Company Number: PHEH2001US01617

PATIENT
  Age: 73 Year
  Sex: Male

DRUGS (3)
  1. CLONIDINE [Concomitant]
  2. EXELON [Suspect]
     Indication: DEMENTIA ALZHEIMER'S TYPE
     Dosage: 1.5 MG, BID, ORAL
     Route: 048
     Dates: start: 20001114
  3. SEROQUEL [Concomitant]

REACTIONS (2)
  - AGGRESSION [None]
  - AGITATION [None]
